FAERS Safety Report 22215508 (Version 1)
Quarter: 2023Q2

REPORT INFORMATION
  Report Type: Report from Study
  Country: EG (occurrence: EG)
  Receive Date: 20230416
  Receipt Date: 20230416
  Transmission Date: 20230721
  Serious: Yes (Other)
  Sender: FDA-Public Use
  Company Number: EG-002147023-NVSC2023EG082070

PATIENT
  Age: 45 Year
  Sex: Female

DRUGS (2)
  1. AIMOVIG [Suspect]
     Active Substance: ERENUMAB-AOOE
     Indication: Migraine
     Dosage: 70 MILLIGRAM, QMO (STARTED FROM 9 MONTHS TO 3 MONTHS)
     Route: 058
  2. AMIGRAINE [Concomitant]
     Indication: Migraine
     Dosage: UNK (STARTED FROM 25 YEARS) (3 TO 5 ORAL TABLETS PER DAY ACCORDING TO STRESS, BUT SHE  TAKES NOW ONE
     Route: 048

REACTIONS (7)
  - Abortion spontaneous [Unknown]
  - Maternal exposure during pregnancy [Unknown]
  - Cervical radiculopathy [Recovering/Resolving]
  - Pain [Recovered/Resolved]
  - Fatigue [Recovered/Resolved]
  - Migraine [Recovering/Resolving]
  - Drug ineffective [Recovering/Resolving]
